FAERS Safety Report 5517634-3 (Version None)
Quarter: 2007Q4

REPORT INFORMATION
  Report Type: 
  Country: None (occurrence: None)
  Receive Date: 20071114
  Receipt Date: 20071108
  Transmission Date: 20080405
  Serious: Yes (Hospitalization)
  Sender: FDA-Public Use
  Company Number: US-ROXANE LABORATORIES, INC-2007-BP-24227RO

PATIENT
  Age: 83 Year
  Sex: Female

DRUGS (3)
  1. MERCAPTOPURINE [Suspect]
     Indication: COLITIS ULCERATIVE
  2. PREDNISONE TAB [Suspect]
     Indication: COLITIS ULCERATIVE
  3. FLUCONAZOLE [Suspect]
     Indication: OESOPHAGEAL CANDIDIASIS
     Route: 048

REACTIONS (6)
  - COLITIS [None]
  - DIARRHOEA [None]
  - DRUG INTERACTION INHIBITION [None]
  - OESOPHAGEAL CANDIDIASIS [None]
  - PANCYTOPENIA [None]
  - RECTAL HAEMORRHAGE [None]
